FAERS Safety Report 6894255-1 (Version None)
Quarter: 2010Q3

REPORT INFORMATION
  Report Type: 
  Country: None (occurrence: None)
  Receive Date: 20100728
  Receipt Date: 20100720
  Transmission Date: 20110219
  Serious: Yes (Other)
  Sender: FDA-Public Use
  Company Number: 015783

PATIENT
  Age: 76 Year
  Sex: Male

DRUGS (1)
  1. PROSTAVASIN / 00501501 / (PROSTAVASIN) [Suspect]

REACTIONS (1)
  - DEAFNESS [None]
